FAERS Safety Report 13504139 (Version 1)
Quarter: 2017Q2

REPORT INFORMATION
  Report Type: Spontaneous
  Country: FR (occurrence: FR)
  Receive Date: 20170502
  Receipt Date: 20170502
  Transmission Date: 20170830
  Serious: Yes (Other)
  Sender: FDA-Public Use
  Company Number: ALCN2017FR003026

PATIENT
  Age: 40 Year
  Sex: Female

DRUGS (4)
  1. GANFORT [Suspect]
     Active Substance: BIMATOPROST\TIMOLOL
     Indication: OCULAR HYPERTENSION
     Dosage: UNK, QD
     Route: 047
     Dates: start: 201605, end: 201607
  2. LUMIGAN [Suspect]
     Active Substance: BIMATOPROST
     Indication: OCULAR HYPERTENSION
     Dosage: UNK UNK, QD
     Route: 047
     Dates: start: 201701, end: 201704
  3. AZOPT [Suspect]
     Active Substance: BRINZOLAMIDE
     Indication: OCULAR HYPERTENSION
     Dosage: UNK UNK, QD
     Route: 047
     Dates: start: 201612, end: 201612
  4. MONOPROST [Suspect]
     Active Substance: LATANOPROST
     Indication: OCULAR HYPERTENSION
     Dosage: UNK, QD
     Route: 047
     Dates: start: 201609, end: 201612

REACTIONS (2)
  - Asthenia [Recovered/Resolved]
  - Pain [Recovered/Resolved]
